FAERS Safety Report 16901905 (Version 1)
Quarter: 2019Q4

REPORT INFORMATION
  Report Type: Report from Study
  Country: CA (occurrence: CA)
  Receive Date: 20191010
  Receipt Date: 20191010
  Transmission Date: 20200122
  Serious: Yes (Disabling)
  Sender: FDA-Public Use
  Company Number: CA-ASTRAZENECA-2019SE83405

PATIENT
  Sex: Female

DRUGS (11)
  1. MONOTELUKAST [Concomitant]
  2. AVAMYS [Concomitant]
     Active Substance: FLUTICASONE FUROATE
  3. BUDESONIDE. [Concomitant]
     Active Substance: BUDESONIDE
  4. SULFAMETHOXAZOLE [Concomitant]
     Active Substance: SULFAMETHOXAZOLE
  5. FASENRA [Suspect]
     Active Substance: BENRALIZUMAB
     Indication: ASTHMA
     Route: 058
     Dates: start: 20181020
  6. PREDNISONE. [Concomitant]
     Active Substance: PREDNISONE
  7. BREO ELLIPTA [Concomitant]
     Active Substance: FLUTICASONE FUROATE\VILANTEROL TRIFENATATE
  8. FASENRA [Suspect]
     Active Substance: BENRALIZUMAB
     Indication: ASTHMA
     Route: 058
     Dates: start: 20190920
  9. SPIRIVA [Concomitant]
     Active Substance: TIOTROPIUM BROMIDE MONOHYDRATE
  10. PANTOPRAZOLE [Concomitant]
     Active Substance: PANTOPRAZOLE
  11. ERYTHOMYCIN [Concomitant]

REACTIONS (4)
  - Chest discomfort [Unknown]
  - Asthma [Unknown]
  - Drug ineffective [Recovered/Resolved with Sequelae]
  - Hypersensitivity [Not Recovered/Not Resolved]
